FAERS Safety Report 7931284 (Version 3)
Quarter: 2013Q3

REPORT INFORMATION
  Report Type: Spontaneous
  Country: US (occurrence: US)
  Receive Date: 20110505
  Receipt Date: 20130909
  Transmission Date: 20140515
  Serious: Yes (Other)
  Sender: FDA-Public Use
  Company Number: US-GENZYME-CERZ-1002033

PATIENT
  Age: 34 Year
  Sex: Female

DRUGS (5)
  1. CEREZYME [Suspect]
     Indication: GAUCHER^S DISEASE
     Dosage: 4000 U, Q2W
     Route: 042
     Dates: start: 20101110
  2. BENADRYL [Concomitant]
     Indication: PREMEDICATION
     Dosage: UNK % SATURATION, UNK
     Route: 065
  3. ESGIC [Concomitant]
     Indication: PRODUCT USED FOR UNKNOWN INDICATION
     Dosage: UNK UNK, UNK
     Route: 065
  4. DECADRON [Concomitant]
     Indication: PREMEDICATION
     Dosage: UNK
     Route: 065
  5. ELELYSO [Concomitant]
     Indication: GAUCHER^S DISEASE
     Dosage: 6000 U, Q2W
     Route: 042
     Dates: start: 20130110

REACTIONS (5)
  - Blood pressure increased [Recovered/Resolved]
  - Pain [Recovered/Resolved]
  - Wheezing [Recovered/Resolved]
  - Cough [Recovered/Resolved]
  - Chest discomfort [Recovered/Resolved]
